FAERS Safety Report 22274038 (Version 1)
Quarter: 2023Q2

REPORT INFORMATION
  Report Type: Report from Study
  Country: FR (occurrence: FR)
  Receive Date: 20230502
  Receipt Date: 20230502
  Transmission Date: 20230721
  Serious: Yes (Hospitalization)
  Sender: FDA-Public Use
  Company Number: FR-ABBVIE-4747877

PATIENT
  Age: 69 Year
  Sex: Female
  Weight: 52 kg

DRUGS (13)
  1. UPADACITINIB [Suspect]
     Active Substance: UPADACITINIB
     Indication: Rheumatoid arthritis
     Dosage: 15 MILLIGRAM
     Route: 048
     Dates: start: 20221201, end: 20230220
  2. UPADACITINIB [Suspect]
     Active Substance: UPADACITINIB
     Indication: Rheumatoid arthritis
     Dosage: 15 MILLIGRAM
     Route: 048
     Dates: start: 20230310, end: 20230426
  3. UPADACITINIB [Suspect]
     Active Substance: UPADACITINIB
     Indication: Rheumatoid arthritis
     Dosage: 15 MILLIGRAM
     Route: 048
     Dates: start: 20210510, end: 20220117
  4. UPADACITINIB [Suspect]
     Active Substance: UPADACITINIB
     Indication: Rheumatoid arthritis
     Dosage: 15 MILLIGRAM
     Route: 048
     Dates: start: 20220220, end: 20221108
  5. METHOTREXATE [Concomitant]
     Active Substance: METHOTREXATE
     Indication: Sjogren^s syndrome
     Route: 048
     Dates: start: 2010
  6. FOLIC ACID [Concomitant]
     Active Substance: FOLIC ACID
     Indication: Product used for unknown indication
     Route: 048
  7. PERINDOPRIL [Concomitant]
     Active Substance: PERINDOPRIL
     Indication: Prophylaxis
     Dosage: 2.5 MILLIGRAM
     Route: 048
     Dates: end: 20211020
  8. AMOXICILLIN [Concomitant]
     Active Substance: AMOXICILLIN
     Indication: Gingivitis
     Route: 048
     Dates: start: 20220110, end: 20220115
  9. CORTISONE [Concomitant]
     Active Substance: CORTISONE
     Indication: Rheumatoid arthritis
     Dates: start: 20221116
  10. CORTISONE [Concomitant]
     Active Substance: CORTISONE
     Indication: Rheumatoid arthritis
     Dosage: 5 MILLIGRAM
     Route: 048
     Dates: end: 20221018
  11. CHOLECALCIFEROL [Concomitant]
     Active Substance: CHOLECALCIFEROL
     Indication: Prophylaxis
     Route: 048
  12. HYDROCORTISONE [Concomitant]
     Active Substance: HYDROCORTISONE
     Indication: Product used for unknown indication
     Route: 048
     Dates: start: 20221019, end: 20221115
  13. CANDESARTAN [Concomitant]
     Active Substance: CANDESARTAN
     Indication: Hypertension
     Dosage: 8 MILLIGRAM
     Route: 048
     Dates: start: 20211020

REACTIONS (1)
  - Foot operation [Recovered/Resolved]

NARRATIVE: CASE EVENT DATE: 20230126
